FAERS Safety Report 19877523 (Version 1)
Quarter: 2021Q3

REPORT INFORMATION
  Report Type: Spontaneous
  Country: US (occurrence: US)
  Receive Date: 20210923
  Receipt Date: 20210923
  Transmission Date: 20211014
  Serious: Yes (Other)
  Sender: FDA-Public Use
  Company Number: None

PATIENT
  Age: 30 Year
  Sex: Male
  Weight: 85.95 kg

DRUGS (1)
  1. DEXMETHYLPHENIDATE ER [Suspect]
     Active Substance: DEXMETHYLPHENIDATE HYDROCHLORIDE
     Indication: ATTENTION DEFICIT HYPERACTIVITY DISORDER
     Route: 048
     Dates: start: 20210915, end: 20210920

REACTIONS (3)
  - Decreased appetite [None]
  - Agitation [None]
  - Vision blurred [None]

NARRATIVE: CASE EVENT DATE: 20210915
